FAERS Safety Report 4341449-5 (Version None)
Quarter: 2004Q2

REPORT INFORMATION
  Report Type: 
  Country: None (occurrence: None)
  Receive Date: 20040415
  Receipt Date: 20040406
  Transmission Date: 20050107
  Serious: Yes (Hospitalization)
  Sender: FDA-Public Use
  Company Number: 200410231BNE

PATIENT
  Age: 72 Year
  Sex: Male

DRUGS (7)
  1. DACARBAZINE [Suspect]
     Indication: MALIGNANT MELANOMA
     Dosage: 2000 MG, TOTAL DAILY, INTRAVENOUS
     Route: 042
     Dates: start: 20040225
  2. AMLODIPINE [Concomitant]
  3. CLOPIDROGREL BISULFATE [Concomitant]
  4. SIMVASTATIN [Concomitant]
  5. LISINOPRIL [Concomitant]
  6. METOPROLOL [Concomitant]
  7. AMITRIPTYLINE HCL [Concomitant]

REACTIONS (2)
  - FEBRILE NEUTROPENIA [None]
  - WHITE BLOOD CELL COUNT DECREASED [None]
